FAERS Safety Report 13770700 (Version 1)
Quarter: 2017Q3

REPORT INFORMATION
  Report Type: Spontaneous
  Country: US (occurrence: US)
  Receive Date: 20170719
  Receipt Date: 20170719
  Transmission Date: 20171127
  Serious: No
  Sender: FDA-Public Use
  Company Number: US-BAYER-2017-134302

PATIENT
  Age: 23 Year
  Sex: Female

DRUGS (6)
  1. MINOCYCLINE [Concomitant]
     Active Substance: MINOCYCLINE\MINOCYCLINE HYDROCHLORIDE
     Indication: PERIODONTITIS
     Dosage: 100 MG, UNK
     Route: 004
  2. SODIUM HYPOCHLORITE [Concomitant]
     Active Substance: SODIUM HYPOCHLORITE
     Indication: IRRIGATION THERAPY
     Dosage: 2.5 %, UNK
  3. CIPROFLOXACIN. [Suspect]
     Active Substance: CIPROFLOXACIN
     Indication: PERIODONTITIS
     Dosage: 200 MG, UNK
     Route: 004
  4. METRONIDAZOLE. [Concomitant]
     Active Substance: METRONIDAZOLE
     Indication: PERIODONTITIS
     Dosage: 500 MG, UNK
     Route: 004
  5. MEPIVACAINE [Concomitant]
     Active Substance: MEPIVACAINE\MEPIVACAINE HYDROCHLORIDE
     Indication: ANAESTHESIA
     Dosage: 3 %, UNK
  6. SALINE [SODIUM CHLORIDE] [Concomitant]
     Active Substance: SODIUM CHLORIDE

REACTIONS (4)
  - Therapeutic response unexpected [None]
  - Product use in unapproved indication [None]
  - Off label use [None]
  - Wrong technique in product usage process [None]
